FAERS Safety Report 17581612 (Version 1)
Quarter: 2020Q1

REPORT INFORMATION
  Report Type: Spontaneous
  Country: US (occurrence: US)
  Receive Date: 20200323
  Receipt Date: 20200323
  Transmission Date: 20200409
  Serious: Yes (Other)
  Sender: FDA-Public Use
  Company Number: None

PATIENT
  Age: 65 Year
  Sex: Female
  Weight: 88.79 kg

DRUGS (22)
  1. ESCITALOPRAM [Concomitant]
     Active Substance: ESCITALOPRAM OXALATE
  2. ALLOPURINOL. [Concomitant]
     Active Substance: ALLOPURINOL
  3. AMOXICILLIN. [Concomitant]
     Active Substance: AMOXICILLIN
  4. ELIDEL [Concomitant]
     Active Substance: PIMECROLIMUS
  5. FLUOCINONIDE. [Concomitant]
     Active Substance: FLUOCINONIDE
  6. STELARA [Concomitant]
     Active Substance: USTEKINUMAB
  7. FLUCONAZOLE. [Concomitant]
     Active Substance: FLUCONAZOLE
  8. LEVOTHYROXINE. [Concomitant]
     Active Substance: LEVOTHYROXINE
  9. PROCHLORPERAZINE. [Concomitant]
     Active Substance: PROCHLORPERAZINE
  10. TASIGNA [Suspect]
     Active Substance: NILOTINIB
     Indication: CHRONIC MYELOID LEUKAEMIA
     Route: 048
     Dates: start: 20200314
  11. HUMIRA [Concomitant]
     Active Substance: ADALIMUMAB
  12. PANTOPRAZOLE [Concomitant]
     Active Substance: PANTOPRAZOLE
  13. ZOLPIDEM TARTRATE. [Concomitant]
     Active Substance: ZOLPIDEM TARTRATE
  14. METFORMIN [Concomitant]
     Active Substance: METFORMIN HYDROCHLORIDE
  15. BENZONATATE. [Concomitant]
     Active Substance: BENZONATATE
  16. CEFDINIR. [Concomitant]
     Active Substance: CEFDINIR
  17. ESZOPICLONE. [Concomitant]
     Active Substance: ESZOPICLONE
  18. NYSTATIN. [Concomitant]
     Active Substance: NYSTATIN
  19. OXYCODONE-ACETAMINOPHEN [Concomitant]
     Active Substance: ACETAMINOPHEN\OXYCODONE HYDROCHLORIDE
  20. CARISOPRODOL. [Concomitant]
     Active Substance: CARISOPRODOL
  21. ATIVAN [Concomitant]
     Active Substance: LORAZEPAM
  22. LIPITOR [Concomitant]
     Active Substance: ATORVASTATIN CALCIUM

REACTIONS (5)
  - Chromaturia [None]
  - Pain [None]
  - Intra-abdominal fluid collection [None]
  - Abdominal distension [None]
  - Urine odour abnormal [None]

NARRATIVE: CASE EVENT DATE: 20200320
